FAERS Safety Report 8000461-5 (Version None)
Quarter: 2011Q4

REPORT INFORMATION
  Report Type: 
  Country: None (occurrence: None)
  Receive Date: 20111222
  Receipt Date: 20111014
  Transmission Date: 20120403
  Serious: No
  Sender: FDA-Public Use
  Company Number: US-BRISTOL-MYERS SQUIBB COMPANY-16162414

PATIENT
  Sex: Female

DRUGS (1)
  1. PRAVACHOL [Suspect]
     Dates: start: 20090101, end: 20110501

REACTIONS (4)
  - MALAISE [None]
  - PYREXIA [None]
  - DIZZINESS [None]
  - MYALGIA [None]
